FAERS Safety Report 14173277 (Version 12)
Quarter: 2019Q3

REPORT INFORMATION
  Report Type: Report from Study
  Country: DE (occurrence: DE)
  Receive Date: 20171109
  Receipt Date: 20190821
  Transmission Date: 20191004
  Serious: Yes (Death, Hospitalization, Other)
  Sender: FDA-Public Use
  Company Number: DE-BRISTOL-MYERS SQUIBB COMPANY-BMS-2017-068337

PATIENT
  Age: 51 Year
  Sex: Male

DRUGS (8)
  1. APIXABAN [Concomitant]
     Active Substance: APIXABAN
     Indication: PRODUCT USED FOR UNKNOWN INDICATION
     Route: 065
  2. NIVOLUMAB [Suspect]
     Active Substance: NIVOLUMAB
     Indication: METASTATIC MALIGNANT MELANOMA
     Dosage: 79 MG, Q3WK
     Route: 042
     Dates: start: 20170616, end: 20170718
  3. IPILIMUMAB [Suspect]
     Active Substance: IPILIMUMAB
     Indication: METASTATIC MALIGNANT MELANOMA
     Dosage: 237 MG, Q3WK
     Route: 042
     Dates: start: 20170616, end: 20170718
  4. METHYLPREDNISOLONE. [Concomitant]
     Active Substance: METHYLPREDNISOLONE
     Indication: PRODUCT USED FOR UNKNOWN INDICATION
     Route: 065
  5. TEMODAL [Suspect]
     Active Substance: TEMOZOLOMIDE
     Indication: PRODUCT USED FOR UNKNOWN INDICATION
     Dosage: 365 MILLIGRAM, QD
     Route: 065
     Dates: start: 20180602, end: 20180606
  6. AMPHOTERICIN B. [Concomitant]
     Active Substance: AMPHOTERICIN B
     Indication: PRODUCT USED FOR UNKNOWN INDICATION
     Dosage: UNK
     Route: 065
  7. PREDNISOLON                        /00016201/ [Concomitant]
     Active Substance: PREDNISOLONE
     Indication: PRODUCT USED FOR UNKNOWN INDICATION
     Dosage: 150 MG, QD
     Route: 048
     Dates: start: 20170703, end: 20170706
  8. METOPROLOLUM [Concomitant]
     Indication: PRODUCT USED FOR UNKNOWN INDICATION
     Dosage: 95 MG, UNK
     Route: 048
     Dates: start: 20170703, end: 20170708

REACTIONS (12)
  - Oesophagitis [Recovered/Resolved]
  - Vomiting [Recovered/Resolved]
  - Hypersensitivity [Recovered/Resolved]
  - Pruritus [Recovered/Resolved]
  - Autoimmune thyroiditis [Recovered/Resolved]
  - Urticaria [Recovered/Resolved]
  - Atrial fibrillation [Recovered/Resolved]
  - Rash [Recovered/Resolved]
  - Malignant neoplasm progression [Fatal]
  - Autoimmune hepatitis [Recovered/Resolved]
  - Basedow^s disease [Recovered/Resolved]
  - Fatigue [Recovered/Resolved]

NARRATIVE: CASE EVENT DATE: 20170703
